FAERS Safety Report 20510892 (Version 6)
Quarter: 2025Q1

REPORT INFORMATION
  Report Type: Report from Study
  Country: IN (occurrence: IN)
  Receive Date: 20220224
  Receipt Date: 20250128
  Transmission Date: 20250409
  Serious: Yes (Death, Other)
  Sender: NOVARTIS
  Company Number: IN-NOVARTISPH-NVSC2020IN343065

PATIENT
  Sex: Female

DRUGS (5)
  1. RIBOCICLIB [Suspect]
     Active Substance: RIBOCICLIB
     Indication: Breast cancer
     Dosage: 600 MG, QD
     Route: 048
     Dates: start: 20200303, end: 20201205
  2. RIBOCICLIB [Suspect]
     Active Substance: RIBOCICLIB
     Indication: Breast cancer metastatic
     Dosage: 600 MG, QD
     Route: 048
     Dates: start: 202101
  3. RIBOCICLIB [Suspect]
     Active Substance: RIBOCICLIB
     Indication: Hormone receptor positive HER2 negative breast cancer
     Dosage: 400 MG, QD (DOSE REDUCED)
     Route: 048
  4. LUTROZOLE [Concomitant]
     Indication: Product used for unknown indication
     Dosage: 2.5 MG, QD (TABLET)
     Route: 048
  5. CCM [Concomitant]
     Indication: Product used for unknown indication
     Dosage: UNK, QD (TABLET)
     Route: 048

REACTIONS (9)
  - Gastrointestinal disorder [Fatal]
  - Abnormal faeces [Fatal]
  - Neutropenia [Not Recovered/Not Resolved]
  - Cataract [Recovered/Resolved]
  - Asthenia [Not Recovered/Not Resolved]
  - Blood pressure abnormal [Unknown]
  - Pulse abnormal [Unknown]
  - Hypotension [Unknown]
  - Off label use [Unknown]

NARRATIVE: CASE EVENT DATE: 20210101
